FAERS Safety Report 6018101-3 (Version None)
Quarter: 2008Q4

REPORT INFORMATION
  Report Type: 
  Country: None (occurrence: None)
  Receive Date: 20081223
  Receipt Date: 20081216
  Transmission Date: 20090506
  Serious: Yes (Hospitalization, Other)
  Sender: FDA-Public Use
  Company Number: CA-JNJFOC-20080805523

PATIENT
  Sex: Female
  Weight: 75.6 kg

DRUGS (11)
  1. REMICADE [Suspect]
     Route: 042
  2. REMICADE [Suspect]
     Route: 042
  3. REMICADE [Suspect]
     Route: 042
  4. REMICADE [Suspect]
     Indication: PSORIASIS
     Route: 042
  5. SPIRIVA [Concomitant]
     Route: 055
  6. ALBUTEROL SULFATE [Concomitant]
  7. ADVAIR DISKUS 250/50 [Concomitant]
  8. GLYBURIDE [Concomitant]
  9. METFORMIN HCL [Concomitant]
  10. COVERSYL [Concomitant]
  11. ACETAMINOPHEN [Concomitant]

REACTIONS (2)
  - LEG AMPUTATION [None]
  - THROMBOPHLEBITIS [None]
